FAERS Safety Report 19038736 (Version 1)
Quarter: 2021Q1

REPORT INFORMATION
  Report Type: Spontaneous
  Country: US (occurrence: US)
  Receive Date: 20210322
  Receipt Date: 20210322
  Transmission Date: 20210420
  Serious: Yes (Other)
  Sender: FDA-Public Use
  Company Number: US-BAYER-2021-103010

PATIENT
  Age: 9 Year
  Sex: Male

DRUGS (1)
  1. GADAVIST [Suspect]
     Active Substance: GADOBUTROL
     Indication: MAGNETIC RESONANCE IMAGING BRAIN
     Dosage: 3 ML, ONCE
     Route: 042
     Dates: start: 20210309, end: 20210309

REACTIONS (3)
  - Cough [None]
  - Wheezing [None]
  - Sneezing [None]

NARRATIVE: CASE EVENT DATE: 20210309
